FAERS Safety Report 8030993-5 (Version None)
Quarter: 2012Q1

REPORT INFORMATION
  Report Type: 
  Country: None (occurrence: None)
  Receive Date: 20120109
  Receipt Date: 20111231
  Transmission Date: 20120608
  Serious: Yes (Other)
  Sender: FDA-Public Use
  Company Number: IT-JNJFOC-20120100768

PATIENT
  Sex: Male
  Weight: 80 kg

DRUGS (1)
  1. REMICADE [Suspect]
     Indication: RHEUMATOID ARTHRITIS
     Dosage: DOSE: 3-3.99MG/KG
     Route: 042
     Dates: start: 20100101

REACTIONS (5)
  - INDURATION [None]
  - CELLULITIS [None]
  - NECROSIS [None]
  - ERYTHEMA [None]
  - PAIN [None]
